FAERS Safety Report 10589667 (Version 8)
Quarter: 2016Q2

REPORT INFORMATION
  Report Type: Report from Study
  Country: GB (occurrence: GB)
  Receive Date: 20141118
  Receipt Date: 20160526
  Transmission Date: 20160815
  Serious: Yes (Disabling, Other)
  Sender: FDA-Public Use
  Company Number: PHFR2014GB007815

PATIENT
  Age: 51 Year
  Sex: Female
  Weight: 97.3 kg

DRUGS (1)
  1. GILENYA [Suspect]
     Active Substance: FINGOLIMOD HYDROCHLORIDE
     Indication: MULTIPLE SCLEROSIS
     Dosage: 0.5 MG, QD
     Route: 048
     Dates: start: 20140328, end: 20140523

REACTIONS (4)
  - Retinal cyst [Recovered/Resolved with Sequelae]
  - Vulvovaginal burning sensation [Unknown]
  - Abnormal sensation in eye [Recovering/Resolving]
  - Macular hole [Recovered/Resolved with Sequelae]

NARRATIVE: CASE EVENT DATE: 20140428
